FAERS Safety Report 24008454 (Version 1)
Quarter: 2024Q2

REPORT INFORMATION
  Report Type: Spontaneous
  Country: US (occurrence: US)
  Receive Date: 20240625
  Receipt Date: 20240625
  Transmission Date: 20240717
  Serious: No
  Sender: FDA-Public Use
  Company Number: BANN2400024

PATIENT
  Age: 47 Year
  Sex: Female

DRUGS (2)
  1. BAFIERTAM [Suspect]
     Active Substance: MONOMETHYL FUMARATE
     Indication: Multiple sclerosis
     Dosage: 95 MILLIGRAM, BID
     Route: 048
     Dates: start: 20231003
  2. BAFIERTAM [Suspect]
     Active Substance: MONOMETHYL FUMARATE
     Dosage: 190 MILLIGRAM, BID
     Route: 048

REACTIONS (8)
  - Abdominal discomfort [Unknown]
  - Pruritus [Unknown]
  - Flushing [Unknown]
  - Diarrhoea [Unknown]
  - Feeling abnormal [Unknown]
  - Product use issue [Unknown]
  - Product dose omission issue [Unknown]
  - Insurance issue [Unknown]

NARRATIVE: CASE EVENT DATE: 20231003
